FAERS Safety Report 24296133 (Version 1)
Quarter: 2024Q3

REPORT INFORMATION
  Report Type: Spontaneous
  Country: US (occurrence: US)
  Receive Date: 20240909
  Receipt Date: 20240909
  Transmission Date: 20241016
  Serious: Yes (Other)
  Sender: DR REDDYS
  Company Number: US-DRL-USA-SPO/USA/24/0012951

PATIENT

DRUGS (5)
  1. ISOTRETINOIN [Suspect]
     Active Substance: ISOTRETINOIN
     Indication: Neuroblastoma
     Dosage: ON DAYS 8-21 DURING CYCLES 1-6
  2. TEMOZOLOMIDE [Concomitant]
     Active Substance: TEMOZOLOMIDE
     Indication: Neuroblastoma
     Dosage: ON DAYS 1-5
  3. IRINOTECAN [Concomitant]
     Active Substance: IRINOTECAN
     Indication: Neuroblastoma
     Dosage: ON DAYS 1-5
  4. DINUTUXIMAB [Concomitant]
     Active Substance: DINUTUXIMAB
     Indication: Neuroblastoma
     Dosage: ON DAYS 2-5
  5. SARGRAMOSTIM [Concomitant]
     Active Substance: SARGRAMOSTIM
     Indication: Neuroblastoma
     Dosage: ON DAYS 6-12 DURING CYCLES 1-5

REACTIONS (2)
  - Malignant neoplasm progression [Unknown]
  - Drug ineffective for unapproved indication [Unknown]
